FAERS Safety Report 5840246-9 (Version None)
Quarter: 2008Q3

REPORT INFORMATION
  Report Type: 
  Country: None (occurrence: None)
  Receive Date: 20080730
  Receipt Date: 20080417
  Transmission Date: 20090109
  Serious: No
  Sender: FDA-Public Use
  Company Number: 2008-US-000302

PATIENT
  Age: 8 Year
  Sex: Male
  Weight: 18.1 kg

DRUGS (6)
  1. INCRELEX [Suspect]
     Indication: BODY HEIGHT BELOW NORMAL
     Dosage: 0.8 MG, BID, SUBCUTANEOUS ; 1.5 MG, BID, SUBCUTANEOUS ; 2.3 UNITS, BID, SUBCUTANEOUS
     Route: 058
     Dates: start: 20080116, end: 20080129
  2. INCRELEX [Suspect]
     Indication: BODY HEIGHT BELOW NORMAL
     Dosage: 0.8 MG, BID, SUBCUTANEOUS ; 1.5 MG, BID, SUBCUTANEOUS ; 2.3 UNITS, BID, SUBCUTANEOUS
     Route: 058
     Dates: start: 20080130, end: 20080212
  3. INCRELEX [Suspect]
     Indication: BODY HEIGHT BELOW NORMAL
     Dosage: 0.8 MG, BID, SUBCUTANEOUS ; 1.5 MG, BID, SUBCUTANEOUS ; 2.3 UNITS, BID, SUBCUTANEOUS
     Route: 058
     Dates: start: 20080213, end: 20080410
  4. ZOLOFT [Concomitant]
  5. CONCERTA [Concomitant]
  6. TRAZODONE HCL [Concomitant]

REACTIONS (4)
  - DYSPNOEA [None]
  - INJECTION SITE PRURITUS [None]
  - PAIN IN EXTREMITY [None]
  - URTICARIA [None]
